FAERS Safety Report 9344399 (Version 1)
Quarter: 2013Q2

REPORT INFORMATION
  Report Type: Spontaneous
  Country: US (occurrence: US)
  Receive Date: 20130612
  Receipt Date: 20130612
  Transmission Date: 20140414
  Serious: Yes (Hospitalization)
  Sender: FDA-Public Use
  Company Number: US-PFIZER INC-2013175346

PATIENT
  Age: 51 Year
  Sex: Female

DRUGS (1)
  1. RAPAMUNE [Suspect]
     Indication: LUNG TRANSPLANT
     Dosage: 0.5 (UNKNOWN) DAILY
     Dates: start: 20130312

REACTIONS (2)
  - Gastric disorder [Unknown]
  - Off label use [Unknown]
